FAERS Safety Report 24648869 (Version 3)
Quarter: 2024Q4

REPORT INFORMATION
  Report Type: Report from Study
  Country: DE (occurrence: DE)
  Receive Date: 20241121
  Receipt Date: 20241206
  Transmission Date: 20250114
  Serious: Yes (Hospitalization)
  Sender: EISAI
  Company Number: DE-Eisai-EC-2024-179196

PATIENT
  Age: 63 Year
  Sex: Female

DRUGS (16)
  1. LENVIMA [Suspect]
     Active Substance: LENVATINIB
     Indication: Endometrial cancer
     Dosage: STOPPED://2024
     Route: 048
     Dates: start: 20240419, end: 20240511
  2. LENVIMA [Suspect]
     Active Substance: LENVATINIB
     Dosage: STOPPED://2024
     Route: 048
     Dates: start: 20240703, end: 20240724
  3. LENVIMA [Suspect]
     Active Substance: LENVATINIB
     Route: 048
     Dates: start: 20240727
  4. KEYTRUDA [Suspect]
     Active Substance: PEMBROLIZUMAB
     Indication: Endometrial cancer
     Route: 042
     Dates: start: 20240419, end: 20240511
  5. KEYTRUDA [Suspect]
     Active Substance: PEMBROLIZUMAB
     Route: 042
     Dates: start: 20240703, end: 20240724
  6. KEYTRUDA [Suspect]
     Active Substance: PEMBROLIZUMAB
     Route: 042
     Dates: start: 20240727
  7. KEYTRUDA [Suspect]
     Active Substance: PEMBROLIZUMAB
     Route: 042
     Dates: start: 202408, end: 202408
  8. PANTOPRAZOLE [Concomitant]
     Active Substance: PANTOPRAZOLE
  9. LOPERAMIDE [Concomitant]
     Active Substance: LOPERAMIDE
  10. AMLODIPINE [Concomitant]
     Active Substance: AMLODIPINE BESYLATE
  11. LEVOTHYROXINE SODIUM [Concomitant]
     Active Substance: LEVOTHYROXINE SODIUM
  12. METAMIZOL [Concomitant]
     Active Substance: METAMIZOLE SODIUM
  13. METODOPRAMID [Concomitant]
  14. DIMENHYDRINATE [Concomitant]
     Active Substance: DIMENHYDRINATE
  15. OMEPRAZOLE [Concomitant]
     Active Substance: OMEPRAZOLE
  16. VALSARTAN [Concomitant]
     Active Substance: VALSARTAN

REACTIONS (10)
  - Impaired healing [Unknown]
  - Vomiting [Unknown]
  - Nausea [Unknown]
  - Hyponatraemia [Unknown]
  - Pyrexia [Unknown]
  - Infection [Unknown]
  - Gastrointestinal stoma complication [Unknown]
  - Intervertebral discitis [Unknown]
  - Extrapulmonary tuberculosis [Recovering/Resolving]
  - Pulmonary tuberculosis [Recovering/Resolving]

NARRATIVE: CASE EVENT DATE: 20240501
